FAERS Safety Report 24111459 (Version 4)
Quarter: 2024Q4

REPORT INFORMATION
  Report Type: Spontaneous
  Country: US (occurrence: US)
  Receive Date: 20240718
  Receipt Date: 20241230
  Transmission Date: 20250115
  Serious: No
  Sender: PFIZER
  Company Number: US-PFIZER INC-202400217922

PATIENT
  Age: 84 Year
  Sex: Female
  Weight: 65.77 kg

DRUGS (2)
  1. IBRANCE [Suspect]
     Active Substance: PALBOCICLIB
     Indication: Neoplasm malignant
     Dosage: 125 MG, CYCLIC (1 TABLET A DAY, FOR 21 DAYS AND 7 DAYS OFF)
     Route: 048
  2. IBRANCE [Suspect]
     Active Substance: PALBOCICLIB
     Indication: Hormone receptor positive HER2 negative breast cancer
     Dosage: 100 MG, CYCLIC (TAKE FOR 21 DAYS ON AND 7 DAYS OFF)
     Route: 048

REACTIONS (3)
  - White blood cell count abnormal [Unknown]
  - Acidosis [Unknown]
  - Full blood count decreased [Unknown]

NARRATIVE: CASE EVENT DATE: 20240101
